FAERS Safety Report 8124280-4 (Version None)
Quarter: 2012Q1

REPORT INFORMATION
  Report Type: 
  Country: None (occurrence: None)
  Receive Date: 20120209
  Receipt Date: 20120203
  Transmission Date: 20120608
  Serious: Yes (Other)
  Sender: FDA-Public Use
  Company Number: BR-PFIZER INC-2012031542

PATIENT
  Age: 58 Year
  Sex: Female

DRUGS (1)
  1. PREMARIN [Suspect]
     Indication: ATROPHIC VULVOVAGINITIS
     Dosage: UNK
     Route: 067

REACTIONS (2)
  - VULVOVAGINAL INJURY [None]
  - VULVOVAGINAL DISCOMFORT [None]
